FAERS Safety Report 9251510 (Version 1)
Quarter: 2013Q1

REPORT INFORMATION
  Report Type: Spontaneous
  Country: US (occurrence: None)
  Receive Date: 20130305
  Receipt Date: 20130305
  Transmission Date: 20140127
  Serious: Yes (Hospitalization)
  Sender: FDA-Public Use
  Company Number: 163-21880-12100384

PATIENT
  Age: 67 Year
  Sex: Male

DRUGS (1)
  1. REVLIMID (LENALIDOMIDE) (25 MILLIGRAM, CAPSULES) [Suspect]
     Indication: MALIGNANT LYMPHOID NEOPLASM
     Dosage: 21 IN 21 D
     Route: 048
     Dates: start: 201109, end: 2011

REACTIONS (6)
  - Pyrexia [None]
  - Platelet count decreased [None]
  - White blood cell count decreased [None]
  - Nausea [None]
  - Abdominal discomfort [None]
  - Dry mouth [None]
